FAERS Safety Report 17797171 (Version 2)
Quarter: 2020Q2

REPORT INFORMATION
  Report Type: Spontaneous
  Country: CH (occurrence: CH)
  Receive Date: 20200518
  Receipt Date: 20200618
  Transmission Date: 20200714
  Serious: Yes (Hospitalization, Other)
  Sender: FDA-Public Use
  Company Number: CH-TEVA-2020-CH-1236655

PATIENT
  Age: 39 Year
  Sex: Male

DRUGS (4)
  1. ZOLEDRONIC ACID [Suspect]
     Active Substance: ZOLEDRONIC ACID
     Indication: HYPERCALCAEMIA
     Route: 065
  2. VITAMIN D [Suspect]
     Active Substance: VITAMIN D NOS
     Indication: PRIMARY PROGRESSIVE MULTIPLE SCLEROSIS
     Dosage: 100000 IU (INTERNATIONAL UNIT) DAILY; ACCORDING TO THE ^COIMBRA PROTOCOL^
     Route: 065
     Dates: start: 201704
  3. ISOTONIC SALINE [Concomitant]
     Active Substance: SODIUM CHLORIDE
     Route: 065
  4. CALCITONIN [Suspect]
     Active Substance: CALCITONIN
     Indication: HYPERCALCAEMIA
     Route: 065

REACTIONS (6)
  - Renal failure [Recovering/Resolving]
  - Toxicity to various agents [Recovering/Resolving]
  - Hypercalcaemia [Recovered/Resolved]
  - Overdose [Unknown]
  - Muscle spasticity [Unknown]
  - Nephrogenic diabetes insipidus [Unknown]
